FAERS Safety Report 10339128 (Version 2)
Quarter: 2014Q3

REPORT INFORMATION
  Report Type: Spontaneous
  Country: GR (occurrence: GR)
  Receive Date: 20140724
  Receipt Date: 20140725
  Transmission Date: 20150326
  Serious: Yes (Hospitalization, Other)
  Sender: FDA-Public Use
  Company Number: GR-PFIZER INC-2014205275

PATIENT
  Age: 34 Year
  Sex: Male

DRUGS (6)
  1. SERTRALINE HCL [Suspect]
     Active Substance: SERTRALINE HYDROCHLORIDE
     Indication: PSYCHOTIC DISORDER
     Dosage: 100 MG, 2X/DAY (ONE 100 MG TABLET EVERY 12 HOURS)
  2. HALOPERIDOL. [Interacting]
     Active Substance: HALOPERIDOL
     Indication: PSYCHOMOTOR HYPERACTIVITY
  3. CHLORPROMAZINE [Interacting]
     Active Substance: CHLORPROMAZINE
     Indication: PSYCHOMOTOR HYPERACTIVITY
  4. CHLORPROMAZINE [Interacting]
     Active Substance: CHLORPROMAZINE
     Indication: PSYCHOTIC DISORDER
     Dosage: 100 MG, TOTAL
     Route: 030
  5. BIPERIDEN [Interacting]
     Active Substance: BIPERIDEN
     Indication: EXTRAPYRAMIDAL DISORDER
     Dosage: 20 MG, TOTAL
     Route: 030
  6. HALOPERIDOL. [Interacting]
     Active Substance: HALOPERIDOL
     Indication: PSYCHOTIC DISORDER
     Dosage: 20 MG, TOTAL
     Route: 030

REACTIONS (3)
  - Delirium [Recovered/Resolved]
  - Extrapyramidal disorder [Recovered/Resolved]
  - Drug interaction [Unknown]
